FAERS Safety Report 17010420 (Version 2)
Quarter: 2020Q1

REPORT INFORMATION
  Report Type: Spontaneous
  Country: FR (occurrence: FR)
  Receive Date: 20191108
  Receipt Date: 20200206
  Transmission Date: 20200409
  Serious: Yes (Other)
  Sender: FDA-Public Use
  Company Number: FR-AIRGAS USA-2076636

PATIENT
  Age: 47 Year
  Sex: Female

DRUGS (1)
  1. OXYGEN. [Suspect]
     Active Substance: OXYGEN
     Indication: PRODUCT USED FOR UNKNOWN INDICATION
     Route: 055
     Dates: start: 20160713

REACTIONS (3)
  - Accidental exposure to product [Recovered/Resolved]
  - Burns second degree [Recovered/Resolved]
  - Cold burn [Recovered/Resolved]
